FAERS Safety Report 9181359 (Version 1)
Quarter: 2013Q1

REPORT INFORMATION
  Report Type: Spontaneous
  Country: US (occurrence: None)
  Receive Date: 20130320
  Receipt Date: 20130320
  Transmission Date: 20140127
  Serious: Yes (Death)
  Sender: FDA-Public Use
  Company Number: 2013P1003169

PATIENT
  Age: 52 Year
  Sex: Female

DRUGS (1)
  1. INFUMORPH [Suspect]
     Dates: end: 20130301

REACTIONS (1)
  - Death [None]
